FAERS Safety Report 6464709-0 (Version None)
Quarter: 2009Q4

REPORT INFORMATION
  Report Type: 
  Country: None (occurrence: None)
  Receive Date: 20091201
  Receipt Date: 20091120
  Transmission Date: 20100525
  Serious: Yes (Hospitalization)
  Sender: FDA-Public Use
  Company Number: US-BRISTOL-MYERS SQUIBB COMPANY-13883202

PATIENT
  Age: 65 Year
  Sex: Male
  Weight: 133 kg

DRUGS (8)
  1. IRBESARTAN [Suspect]
     Indication: HYPERTENSION
     Dosage: WITHHELD ON 23AUG2007
     Dates: start: 20040414
  2. WARFARIN SODIUM [Suspect]
     Indication: PROPHYLAXIS
     Dates: start: 20040414
  3. FUROSEMIDE [Concomitant]
  4. TERAZOSIN HCL [Concomitant]
  5. LISINOPRIL [Concomitant]
  6. DILTIAZEM HCL [Concomitant]
  7. SIMVASTATIN [Concomitant]
  8. GEMFIBROZIL [Concomitant]

REACTIONS (3)
  - DYSPNOEA [None]
  - HYPOTENSION [None]
  - RENAL FAILURE ACUTE [None]
